FAERS Safety Report 13137809 (Version 3)
Quarter: 2017Q1

REPORT INFORMATION
  Report Type: Spontaneous
  Country: US (occurrence: US)
  Receive Date: 20170123
  Receipt Date: 20170123
  Transmission Date: 20170428
  Serious: No
  Sender: FDA-Public Use
  Company Number: US-UNITED THERAPEUTICS-UNT-2016-013438

PATIENT
  Age: 18 Year
  Sex: Female
  Weight: 68.27 kg

DRUGS (6)
  1. REMODULIN [Suspect]
     Active Substance: TREPROSTINIL
     Indication: PULMONARY ARTERIAL HYPERTENSION
     Dosage: 0.152 ?G/KG, CONTINUING
     Route: 058
     Dates: start: 20131111
  2. ADCIRCA [Concomitant]
     Active Substance: TADALAFIL
     Indication: PRODUCT USED FOR UNKNOWN INDICATION
  3. ADEMPAS [Concomitant]
     Active Substance: RIOCIGUAT
     Indication: PRODUCT USED FOR UNKNOWN INDICATION
     Dosage: 2 MG, UNK
  4. COUMADIN [Concomitant]
     Active Substance: WARFARIN SODIUM
     Indication: PRODUCT USED FOR UNKNOWN INDICATION
  5. ALBUTEROL                          /00139501/ [Suspect]
     Active Substance: ALBUTEROL
     Indication: PRODUCT USED FOR UNKNOWN INDICATION
     Route: 065
  6. REMODULIN [Suspect]
     Active Substance: TREPROSTINIL
     Dosage: UNK
     Route: 058

REACTIONS (9)
  - Vomiting [Unknown]
  - Nausea [Not Recovered/Not Resolved]
  - Menstrual disorder [Unknown]
  - Dyspnoea [Unknown]
  - Malaise [Unknown]
  - Dizziness [Unknown]
  - Pyrexia [Unknown]
  - Fatigue [Unknown]
  - Chest pain [Unknown]

NARRATIVE: CASE EVENT DATE: 201608
